FAERS Safety Report 8576931-8 (Version None)
Quarter: 2012Q3

REPORT INFORMATION
  Report Type: 
  Country: None (occurrence: None)
  Receive Date: 20120807
  Receipt Date: 20120801
  Transmission Date: 20120928
  Serious: Yes (Disabling, Other)
  Sender: FDA-Public Use
  Company Number: PHEH2012US002293

PATIENT
  Sex: Female
  Weight: 88.435 kg

DRUGS (19)
  1. CALCIUM [Concomitant]
     Dosage: 500
     Route: 048
  2. LOVAZA [Concomitant]
     Dosage: 2 DF, QD
     Route: 048
     Dates: start: 20100608
  3. PROVIGIL [Concomitant]
     Dosage: 2 DF, QD
     Route: 048
     Dates: start: 20110802
  4. BACLOFEN [Concomitant]
     Dosage: 2-4 TABLETS DAILY AS NEEDED
     Route: 048
     Dates: start: 20110630
  5. ESTRADIOL [Concomitant]
     Dates: start: 20100615
  6. COQ10 [Concomitant]
     Dosage: 200 MG, UNK
     Route: 048
     Dates: start: 20090818
  7. WELLBUTRIN SR [Concomitant]
     Dosage: 1 DF, BID FOR 30 DAYS
     Route: 048
     Dates: start: 20110928
  8. GILENYA [Suspect]
     Indication: MULTIPLE SCLEROSIS
     Dosage: 0.5 MG, DAILY
     Route: 048
     Dates: start: 20110825
  9. NEXIUM [Concomitant]
     Dosage: 40 MG, QD
     Route: 048
     Dates: start: 20111215
  10. SYNTHROID [Concomitant]
     Dosage: 1 DF, QD
     Route: 048
     Dates: start: 20100326
  11. TOPAMAX [Concomitant]
     Dosage: 25 MG, UNK
     Route: 048
  12. VITAMIN D [Concomitant]
     Dosage: 1000 IU, UNK
     Route: 048
  13. RESTASIS [Concomitant]
     Dates: start: 20110906
  14. GILENYA [Suspect]
     Route: 048
     Dates: start: 20120627
  15. CALCIUM WITH VITAMIN D [Concomitant]
     Dates: start: 20101208
  16. DITROPAN XL [Concomitant]
     Dosage: 1 DF, QD FOR 90 DAYS
     Route: 048
     Dates: start: 20110825
  17. VITAMIN D [Concomitant]
     Dosage: 1 DF, QW FOR 12 WEEKS
     Route: 048
     Dates: start: 20110825
  18. ESTROGEL [Concomitant]
  19. DOXYCYCLINE HCL [Concomitant]
     Dosage: 50 MG, UNK
     Route: 048

REACTIONS (30)
  - MACULAR OEDEMA [None]
  - HYPOACUSIS [None]
  - BODY TEMPERATURE INCREASED [None]
  - MEMORY IMPAIRMENT [None]
  - PAIN IN EXTREMITY [None]
  - VOMITING [None]
  - VISION BLURRED [None]
  - DIPLOPIA [None]
  - GAIT DISTURBANCE [None]
  - HYPERTENSION [None]
  - BACK PAIN [None]
  - HYPOAESTHESIA [None]
  - RESPIRATORY RATE INCREASED [None]
  - HEART RATE DECREASED [None]
  - PARAESTHESIA [None]
  - VISUAL IMPAIRMENT [None]
  - DRY EYE [None]
  - AMNESIA [None]
  - CATARACT [None]
  - SCOTOMA [None]
  - POLLAKIURIA [None]
  - VARICOSE VEIN [None]
  - FALL [None]
  - JAW DISORDER [None]
  - VITAMIN D DEFICIENCY [None]
  - POSITIVE ROMBERGISM [None]
  - ARTHRALGIA [None]
  - FATIGUE [None]
  - LYMPHOCYTE PERCENTAGE DECREASED [None]
  - EYE PAIN [None]
